FAERS Safety Report 5707488-4 (Version None)
Quarter: 2008Q2

REPORT INFORMATION
  Report Type: 
  Country: None (occurrence: None)
  Receive Date: 20080416
  Receipt Date: 20080409
  Transmission Date: 20081010
  Serious: Yes (Other)
  Sender: FDA-Public Use
  Company Number: US-PFIZER INC-2007086927

PATIENT
  Sex: Male
  Weight: 76.2 kg

DRUGS (1)
  1. XALATAN [Suspect]
     Indication: INTRAOCULAR PRESSURE TEST
     Dates: start: 20020101, end: 20071001

REACTIONS (1)
  - INTRAOCULAR PRESSURE INCREASED [None]
